FAERS Safety Report 19655431 (Version 8)
Quarter: 2021Q4

REPORT INFORMATION
  Report Type: Report from Study
  Country: CA (occurrence: CA)
  Receive Date: 20210803
  Receipt Date: 20211227
  Transmission Date: 20220303
  Serious: Yes (Other)
  Sender: FDA-Public Use
  Company Number: CA-BAUSCH-BL-2020-012306

PATIENT
  Age: 46 Year
  Sex: Male
  Weight: 90.800 kg

DRUGS (12)
  1. SILIQ [Suspect]
     Active Substance: BRODALUMAB
     Indication: Psoriasis
     Dosage: 210 MILLIGRAM/ 1.5 MILLILITRE (WEEK 0,1 AND 2)
     Route: 058
     Dates: start: 20200211, end: 20200225
  2. SILIQ [Suspect]
     Active Substance: BRODALUMAB
     Dosage: 210 MILLIGRAM/ 1.5 MILLILITRE
     Route: 058
     Dates: start: 202003, end: 2020
  3. SILIQ [Suspect]
     Active Substance: BRODALUMAB
     Dosage: 210 MILLIGRAM/ 1.5 MILLILITRE
     Route: 058
     Dates: start: 202005, end: 2021
  4. SILIQ [Suspect]
     Active Substance: BRODALUMAB
     Dosage: 210 MILLIGRAM/ 1.5 MILLILITRE (OFF LABEL- WEEKLY)
     Route: 058
     Dates: start: 202104, end: 20210726
  5. SILIQ [Suspect]
     Active Substance: BRODALUMAB
     Dosage: 210 MILLIGRAM/ 1.5 MILLILITRE (OFF LABEL- WEEKLY)
     Route: 058
     Dates: start: 20211222
  6. ATENOLOL [Concomitant]
     Active Substance: ATENOLOL
     Indication: Product used for unknown indication
     Route: 065
  7. PROTOPIC [Concomitant]
     Active Substance: TACROLIMUS
     Indication: Psoriasis
  8. DOVONEX [Concomitant]
     Active Substance: CALCIPOTRIENE
     Indication: Psoriasis
  9. DOVONEX [Concomitant]
     Active Substance: CALCIPOTRIENE
  10. BETAMETHASONE\CALCIPOTRIENE [Concomitant]
     Active Substance: BETAMETHASONE\CALCIPOTRIENE
     Indication: Psoriasis
  11. BETADERM [Concomitant]
     Active Substance: BETAMETHASONE VALERATE
     Indication: Psoriasis
  12. DERMA SMOOTH [Concomitant]
     Indication: Psoriasis
     Dosage: F/F OYO

REACTIONS (9)
  - Immunoglobulin G4 related disease [Unknown]
  - Bronchitis [Recovered/Resolved]
  - Psoriasis [Not Recovered/Not Resolved]
  - Disease recurrence [Not Recovered/Not Resolved]
  - Product distribution issue [Unknown]
  - Product dose omission issue [Unknown]
  - Patient dissatisfaction with treatment [Unknown]
  - Intentional product use issue [Unknown]
  - Off label use [Unknown]

NARRATIVE: CASE EVENT DATE: 20200101
